FAERS Safety Report 23972635 (Version 1)
Quarter: 2024Q2

REPORT INFORMATION
  Report Type: Spontaneous
  Country: US (occurrence: None)
  Receive Date: 20240613
  Receipt Date: 20240613
  Transmission Date: 20240716
  Serious: Yes (Other)
  Sender: FDA-Public Use
  Company Number: None

PATIENT
  Age: 38 Year
  Sex: Female
  Weight: 67.5 kg

DRUGS (4)
  1. SUN BUM SUNSCREEN LIP BALM BROAD SPECTRUM SPF 30 BANANA [Suspect]
     Active Substance: AVOBENZONE\HOMOSALATE\OCTINOXATE\OCTISALATE
     Indication: Prophylaxis
     Dates: start: 20240609, end: 20240612
  2. MIRENA [Concomitant]
     Active Substance: LEVONORGESTREL
  3. OZEMPIC [Concomitant]
  4. ADULT MULTIVITAMIN [Concomitant]

REACTIONS (2)
  - Lip scab [None]
  - Lip exfoliation [None]

NARRATIVE: CASE EVENT DATE: 20240611
